FAERS Safety Report 4375312-0 (Version None)
Quarter: 2004Q2

REPORT INFORMATION
  Report Type: 
  Country: None (occurrence: None)
  Receive Date: 20040610
  Receipt Date: 20040123
  Transmission Date: 20050107
  Serious: Yes (Hospitalization, Other)
  Sender: FDA-Public Use
  Company Number: 200410192JP

PATIENT
  Age: 30 Year
  Sex: Female
  Weight: 44 kg

DRUGS (10)
  1. ARAVA [Suspect]
     Indication: RHEUMATOID ARTHRITIS
     Route: 048
     Dates: start: 20040113, end: 20040122
  2. ZANTAC [Concomitant]
     Indication: GASTRITIS
     Route: 048
     Dates: start: 19961018
  3. JUVELA NICOTINATE [Concomitant]
     Indication: HYPERLIPIDAEMIA
     Route: 048
     Dates: start: 19961101
  4. SELBEX [Concomitant]
     Indication: GASTRITIS
     Route: 048
     Dates: start: 19961018
  5. RIMATIL [Concomitant]
     Indication: RHEUMATOID ARTHRITIS
     Route: 048
     Dates: start: 20000317, end: 20040226
  6. PREDNISOLONE [Concomitant]
     Indication: RHEUMATOID ARTHRITIS
     Route: 048
     Dates: start: 19960930
  7. LOXONIN [Concomitant]
     Indication: RHEUMATOID ARTHRITIS
     Route: 048
     Dates: start: 20030926
  8. ONE-ALPHA [Concomitant]
     Indication: OSTEOPOROSIS
     Route: 048
     Dates: start: 19970507
  9. THYRADIN S [Concomitant]
     Indication: AUTOIMMUNE THYROIDITIS
     Route: 048
     Dates: start: 19961018
  10. HYALEIN [Concomitant]
     Indication: KERATOCONJUNCTIVITIS SICCA
     Dosage: DOSE: FEW DROPS
     Route: 031
     Dates: start: 19980807

REACTIONS (22)
  - ALANINE AMINOTRANSFERASE INCREASED [None]
  - ALOPECIA [None]
  - APHTHOUS STOMATITIS [None]
  - ASPARTATE AMINOTRANSFERASE INCREASED [None]
  - BLISTER [None]
  - BLOOD LACTATE DEHYDROGENASE INCREASED [None]
  - C-REACTIVE PROTEIN INCREASED [None]
  - DERMATITIS EXFOLIATIVE [None]
  - DRUG ERUPTION [None]
  - FUNGAL INFECTION [None]
  - GAMMA-GLUTAMYLTRANSFERASE INCREASED [None]
  - GENERAL PHYSICAL HEALTH DETERIORATION [None]
  - GLUCOSE URINE PRESENT [None]
  - HAEMATURIA [None]
  - HEADACHE [None]
  - HYPERTENSION [None]
  - KERATITIS [None]
  - LYMPHADENOPATHY [None]
  - NAUSEA [None]
  - PANCYTOPENIA [None]
  - PRURITUS [None]
  - PYREXIA [None]
